FAERS Safety Report 9742173 (Version 1)
Quarter: 2013Q4

REPORT INFORMATION
  Report Type: Spontaneous
  Country: FR (occurrence: FR)
  Receive Date: 20131210
  Receipt Date: 20131210
  Transmission Date: 20140711
  Serious: Yes (Hospitalization)
  Sender: FDA-Public Use
  Company Number: FR-SA-2013SA124958

PATIENT
  Age: 61 Year
  Sex: Male

DRUGS (5)
  1. LANTUS [Suspect]
     Indication: DIABETES MELLITUS
     Route: 058
     Dates: start: 2010
  2. KARDEGIC [Suspect]
     Indication: PRODUCT USED FOR UNKNOWN INDICATION
     Route: 065
  3. METFORMIN [Suspect]
     Indication: DIABETES MELLITUS
     Route: 065
     Dates: start: 1995
  4. VICTOZA [Suspect]
     Indication: DIABETES MELLITUS
     Route: 065
     Dates: start: 2010, end: 20131120
  5. ISOPTINE [Suspect]
     Indication: HYPERTENSION
     Route: 065

REACTIONS (1)
  - Thyroid cancer [Not Recovered/Not Resolved]
